FAERS Safety Report 9503651 (Version 1)
Quarter: 2013Q3

REPORT INFORMATION
  Report Type: Spontaneous
  Country: US (occurrence: None)
  Receive Date: 20130905
  Receipt Date: 20130905
  Transmission Date: 20140515
  Serious: No
  Sender: FDA-Public Use
  Company Number: None

PATIENT
  Sex: Male
  Weight: 73.94 kg

DRUGS (1)
  1. ANDROGEL [Suspect]
     Indication: HORMONE REPLACEMENT THERAPY
     Dosage: 4 PUMPS ONCE DAILY APPLIED TO A SURFACE, USUALLY IN THE SKIN
     Route: 061

REACTIONS (3)
  - Skin disorder [None]
  - Incorrect dose administered [None]
  - Device issue [None]
